FAERS Safety Report 5150350-9 (Version None)
Quarter: 2006Q4

REPORT INFORMATION
  Report Type: 
  Country: None (occurrence: None)
  Receive Date: 20061108
  Receipt Date: 20061026
  Transmission Date: 20070319
  Serious: Yes (Hospitalization, Other)
  Sender: FDA-Public Use
  Company Number: 2006111472

PATIENT
  Age: 72 Year
  Sex: Female
  Weight: 52.5 kg

DRUGS (10)
  1. DIFLUCAN [Suspect]
     Indication: CANDIDIASIS
     Dosage: 100 MG (1 IN 1 D); ORAL
     Route: 048
     Dates: start: 20060829, end: 20060911
  2. DIA-KENCHU-TO [Concomitant]
  3. MECOBALAMIN [Concomitant]
  4. PROPIVERINE HYDROCHLORIDE [Concomitant]
  5. DISTIGMINE BROMIDE [Concomitant]
  6. ALDACTONE [Concomitant]
  7. VANCOMYCIN HYDROCHLORIDE [Concomitant]
  8. FERROMIA (FERROUS CITRATE) [Concomitant]
  9. ALUMINUM HYDROXIDE AND MAGNESIUM TRISILICATE [Concomitant]
  10. FIRSTCIN (CEFOZOPRAN HYDROCHLORIDE) [Concomitant]

REACTIONS (3)
  - MALAISE [None]
  - NAUSEA [None]
  - RENAL FAILURE ACUTE [None]
